FAERS Safety Report 5098196-4 (Version None)
Quarter: 2006Q3

REPORT INFORMATION
  Report Type: 
  Country: None (occurrence: None)
  Receive Date: 20060906
  Receipt Date: 20060526
  Transmission Date: 20061208
  Serious: No
  Sender: FDA-Public Use
  Company Number: US-GLAXOSMITHKLINE-A0607102A

PATIENT
  Age: 45 Year
  Sex: Female

DRUGS (4)
  1. REQUIP [Suspect]
     Indication: SPINAL CORD INJURY
     Dosage: 1MG PER DAY
     Route: 048
     Dates: start: 20060501
  2. ESTROGENS SOL/INJ [Concomitant]
  3. LEXAPRO [Concomitant]
  4. CELEBREX [Concomitant]

REACTIONS (3)
  - BURNING SENSATION [None]
  - INSOMNIA [None]
  - THERAPEUTIC RESPONSE UNEXPECTED [None]
